FAERS Safety Report 9124400 (Version 2)
Quarter: 2013Q1

REPORT INFORMATION
  Report Type: Report from Study
  Country: US (occurrence: US)
  Receive Date: 20130227
  Receipt Date: 20130320
  Transmission Date: 20140127
  Serious: Yes (Death, Hospitalization, Other)
  Sender: FDA-Public Use
  Company Number: US-ACTELION-A-US2013-78767

PATIENT
  Age: 64 Year
  Sex: Female

DRUGS (1)
  1. TRACLEER [Suspect]
     Indication: PULMONARY ARTERIAL HYPERTENSION
     Dosage: UNK
     Route: 048
     Dates: end: 20130215

REACTIONS (4)
  - Death [Fatal]
  - Hip fracture [Recovering/Resolving]
  - Hip surgery [Recovering/Resolving]
  - Head injury [Recovering/Resolving]
